FAERS Safety Report 20353753 (Version 2)
Quarter: 2022Q1

REPORT INFORMATION
  Report Type: Spontaneous
  Country: CN (occurrence: CN)
  Receive Date: 20220120
  Receipt Date: 20220215
  Transmission Date: 20220423
  Serious: Yes (Hospitalization, Other)
  Sender: FDA-Public Use
  Company Number: CN-SA-SAC20220118000186

PATIENT
  Age: 51 Year
  Sex: Male
  Weight: 46 kg

DRUGS (3)
  1. OXALIPLATIN [Suspect]
     Active Substance: OXALIPLATIN
     Indication: Chemotherapy
     Dosage: 150 MG; UNK
     Route: 041
     Dates: start: 20211214, end: 20211214
  2. GIMERACIL\OTERACIL\TEGAFUR [Suspect]
     Active Substance: GIMERACIL\OTERACIL\TEGAFUR
     Indication: Chemotherapy
     Route: 048
     Dates: start: 20211215, end: 20211229
  3. PACLITAXEL [Concomitant]
     Active Substance: PACLITAXEL
     Dosage: 400 MG; UNK
     Route: 065

REACTIONS (6)
  - Myelosuppression [Unknown]
  - White blood cell count abnormal [Unknown]
  - Monocyte count abnormal [Unknown]
  - Haemoglobin abnormal [Unknown]
  - Red blood cell count abnormal [Unknown]
  - Platelet count abnormal [Unknown]

NARRATIVE: CASE EVENT DATE: 20211219
